FAERS Safety Report 12464136 (Version 1)
Quarter: 2016Q2

REPORT INFORMATION
  Report Type: Spontaneous
  Country: US (occurrence: None)
  Receive Date: 20160613
  Receipt Date: 20160613
  Transmission Date: 20160815
  Serious: Yes (Life-Threatening, Hospitalization)
  Sender: FDA-Public Use
  Company Number: None

PATIENT
  Age: 70 Year
  Sex: Female
  Weight: 86.18 kg

DRUGS (13)
  1. HYDRALAZINE [Concomitant]
     Active Substance: HYDRALAZINE HYDROCHLORIDE
  2. LEVOTHYROXINE. [Concomitant]
     Active Substance: LEVOTHYROXINE
  3. LISINOPRIL. [Concomitant]
     Active Substance: LISINOPRIL
  4. GABLOFEN [Suspect]
     Active Substance: BACLOFEN
     Indication: MUSCLE SPASMS
     Dosage: 120 INTRATHICAL CONTINUOUS INTRATHICAL
     Route: 037
  5. MEDTRONICS INTRATHICAL PUMP [Concomitant]
  6. AMLODIPINE [Concomitant]
     Active Substance: AMLODIPINE BESYLATE
  7. PROPRANOLOL [Concomitant]
     Active Substance: PROPRANOLOL\PROPRANOLOL HYDROCHLORIDE
  8. GABLOFEN [Suspect]
     Active Substance: BACLOFEN
     Indication: HEREDITARY SPASTIC PARAPLEGIA
     Dosage: 120 INTRATHICAL CONTINUOUS INTRATHICAL
     Route: 037
  9. BACLOFEN. [Concomitant]
     Active Substance: BACLOFEN
  10. CRESTOR [Concomitant]
     Active Substance: ROSUVASTATIN CALCIUM
  11. GABAPENTIN. [Concomitant]
     Active Substance: GABAPENTIN
  12. PRIMIDONE. [Concomitant]
     Active Substance: PRIMIDONE
  13. ASPIRIN. [Concomitant]
     Active Substance: ASPIRIN

REACTIONS (9)
  - Amnesia [None]
  - Lethargy [None]
  - Unresponsive to stimuli [None]
  - Dizziness [None]
  - Acute respiratory failure [None]
  - Overdose [None]
  - Confusional state [None]
  - Hypertension [None]
  - Product lot number issue [None]

NARRATIVE: CASE EVENT DATE: 20160507
